FAERS Safety Report 14570538 (Version 1)
Quarter: 2018Q1

REPORT INFORMATION
  Report Type: Spontaneous
  Country: CA (occurrence: CA)
  Receive Date: 20180226
  Receipt Date: 20180226
  Transmission Date: 20180509
  Serious: Yes (Other)
  Sender: FDA-Public Use
  Company Number: CA-ORION CORPORATION ORION PHARMA-TREX2018-0531

PATIENT
  Age: 49 Year
  Sex: Female

DRUGS (10)
  1. METHOTREXATE (TRADE NAME UNKNOWN) [Suspect]
     Active Substance: METHOTREXATE
     Route: 065
  2. CELECOXIB. [Concomitant]
     Active Substance: CELECOXIB
     Route: 065
  3. HUMIRA [Suspect]
     Active Substance: ADALIMUMAB
     Route: 058
  4. ACTEMRA [Concomitant]
     Active Substance: TOCILIZUMAB
     Route: 065
  5. HYDROMORPHONE HYDROCHLORIDE. [Concomitant]
     Active Substance: HYDROMORPHONE HYDROCHLORIDE
     Route: 065
  6. HYDROXYCHLOROQUINE [Concomitant]
     Active Substance: HYDROXYCHLOROQUINE
     Route: 065
  7. RITUXAN [Suspect]
     Active Substance: RITUXIMAB
     Route: 042
  8. IBUPROFEN. [Concomitant]
     Active Substance: IBUPROFEN
     Route: 065
  9. ENBREL [Suspect]
     Active Substance: ETANERCEPT
     Route: 065
  10. APO-PREDNISONE [Suspect]
     Active Substance: PREDNISONE
     Route: 065

REACTIONS (5)
  - Rheumatoid arthritis [Unknown]
  - Type 2 diabetes mellitus [Unknown]
  - Drug ineffective [Unknown]
  - Nausea [Unknown]
  - Respiratory disorder [Unknown]
